FAERS Safety Report 21019443 (Version 2)
Quarter: 2025Q2

REPORT INFORMATION
  Report Type: Spontaneous
  Country: US (occurrence: US)
  Receive Date: 20220628
  Receipt Date: 20250410
  Transmission Date: 20250717
  Serious: No
  Sender: SANOFI AVENTIS
  Company Number: US-SA-SAC20220627001167

PATIENT
  Age: 56 Year
  Sex: Female
  Weight: 60 kg

DRUGS (11)
  1. DUPIXENT [Suspect]
     Active Substance: DUPILUMAB
     Indication: Asthma
     Dosage: 300 MG, QOW
     Route: 058
     Dates: start: 202105
  2. ALBUTEROL SULFATE [Concomitant]
     Active Substance: ALBUTEROL SULFATE
  3. ZINC [Concomitant]
     Active Substance: ZINC
  4. TRINTELLIX [Concomitant]
     Active Substance: VORTIOXETINE HYDROBROMIDE
  5. VITAMIN B12 [Concomitant]
     Active Substance: CYANOCOBALAMIN
  6. SINGULAIR [Concomitant]
     Active Substance: MONTELUKAST SODIUM
  7. BUPROPION [Concomitant]
     Active Substance: BUPROPION
  8. PROGESTERONE [Concomitant]
     Active Substance: PROGESTERONE
  9. ESTRADIOL [Concomitant]
     Active Substance: ESTRADIOL
  10. DOXYCYCLINE [Concomitant]
     Active Substance: DOXYCYCLINE
  11. SUMATRIPTAN [Concomitant]
     Active Substance: SUMATRIPTAN

REACTIONS (2)
  - COVID-19 [Unknown]
  - Migraine [Recovered/Resolved]

NARRATIVE: CASE EVENT DATE: 20220618
